FAERS Safety Report 6108256-4 (Version None)
Quarter: 2009Q1

REPORT INFORMATION
  Report Type: 
  Country: None (occurrence: None)
  Receive Date: 20090309
  Receipt Date: 20090130
  Transmission Date: 20090719
  Serious: Yes (Death)
  Sender: FDA-Public Use
  Company Number: US-TYCO HEALTHCARE/MALLINCKRODT-T200900404

PATIENT
  Age: 52 Year
  Sex: Male

DRUGS (3)
  1. OXYCODONE HCL [Suspect]
     Route: 065
  2. FENTANYL [Suspect]
     Route: 023
  3. DIAZEPAM [Suspect]
     Route: 065

REACTIONS (1)
  - CARDIO-RESPIRATORY ARREST [None]
